FAERS Safety Report 7373254-X (Version None)
Quarter: 2011Q1

REPORT INFORMATION
  Report Type: 
  Country: None (occurrence: None)
  Receive Date: 20110324
  Receipt Date: 20110118
  Transmission Date: 20110831
  Serious: No
  Sender: FDA-Public Use
  Company Number: US-BAYER-2011-006054

PATIENT
  Sex: Female
  Weight: 77 kg

DRUGS (4)
  1. LISINOPRIL [Concomitant]
  2. ALEVE (CAPLET) [Suspect]
     Indication: ARTHRALGIA
     Dosage: 2 DF, OM, BOTTLE COUNT 200CT
     Route: 048
     Dates: start: 20100101
  3. BIOTIN [Concomitant]
     Dosage: UNK
  4. METFORMIN HCL [Concomitant]

REACTIONS (1)
  - NO ADVERSE EVENT [None]
